FAERS Safety Report 5408819-5 (Version None)
Quarter: 2007Q3

REPORT INFORMATION
  Report Type: 
  Country: None (occurrence: None)
  Receive Date: 20070808
  Receipt Date: 20070731
  Transmission Date: 20080115
  Serious: Yes (Other)
  Sender: FDA-Public Use
  Company Number: B0482549A

PATIENT
  Age: 9 Year
  Sex: Male

DRUGS (1)
  1. CHILDREN'S PANADOL ELIXIR 5-12 YEARS [Suspect]
     Indication: PYREXIA
     Route: 048
     Dates: start: 20070728

REACTIONS (1)
  - HALLUCINATION [None]
